FAERS Safety Report 25058490 (Version 1)
Quarter: 2025Q1

REPORT INFORMATION
  Report Type: Spontaneous
  Country: AR (occurrence: AR)
  Receive Date: 20250310
  Receipt Date: 20250310
  Transmission Date: 20250409
  Serious: Yes (Other)
  Sender: PFIZER
  Company Number: AR-PFIZER INC-202500051877

PATIENT
  Age: 68 Year
  Sex: Male

DRUGS (1)
  1. IXIFI [Suspect]
     Active Substance: INFLIXIMAB-QBTX
     Dates: start: 20220913

REACTIONS (1)
  - Colitis ulcerative [Unknown]
